FAERS Safety Report 8345206-4 (Version None)
Quarter: 2012Q2

REPORT INFORMATION
  Report Type: 
  Country: None (occurrence: None)
  Receive Date: 20120508
  Receipt Date: 20120502
  Transmission Date: 20120825
  Serious: Yes (Other)
  Sender: FDA-Public Use
  Company Number: US-ACTELION-A-NJ2011-57889

PATIENT

DRUGS (3)
  1. LETAIRIS [Concomitant]
  2. VENTAVIS [Suspect]
     Indication: PULMONARY ARTERIAL HYPERTENSION
     Dosage: UNK
     Route: 055
     Dates: start: 20110503
  3. CALCIUM CHANNEL BLOCKERS [Concomitant]

REACTIONS (4)
  - MASTECTOMY [None]
  - BREAST CANCER [None]
  - CHEMOTHERAPY [None]
  - FATIGUE [None]
